FAERS Safety Report 19065958 (Version 4)
Quarter: 2021Q4

REPORT INFORMATION
  Report Type: Report from Study
  Country: MX (occurrence: MX)
  Receive Date: 20210327
  Receipt Date: 20211030
  Transmission Date: 20220303
  Serious: Yes (Hospitalization, Other)
  Sender: FDA-Public Use
  Company Number: NVSC2021MX063886

PATIENT
  Age: 65 Year
  Sex: Female
  Weight: 70 kg

DRUGS (13)
  1. ELTROMBOPAG OLAMINE [Suspect]
     Active Substance: ELTROMBOPAG OLAMINE
     Indication: Systemic lupus erythematosus
     Dosage: 1 DF, QD
     Route: 048
     Dates: start: 202009
  2. ELTROMBOPAG OLAMINE [Suspect]
     Active Substance: ELTROMBOPAG OLAMINE
     Dosage: 1 DF, QD
     Route: 048
     Dates: start: 202009
  3. ELTROMBOPAG OLAMINE [Suspect]
     Active Substance: ELTROMBOPAG OLAMINE
     Dosage: 1 DF, QD (25 MG)
     Route: 048
     Dates: start: 202011
  4. LEVOTHYROXINE [Concomitant]
     Active Substance: LEVOTHYROXINE
     Indication: Thyroid cancer
     Dosage: UNK
     Route: 048
     Dates: start: 202009
  5. FILATIL [Concomitant]
     Indication: Decreased immune responsiveness
     Dosage: 1 (300 MG) EVERY 5 DAYS
     Route: 058
     Dates: start: 202009
  6. ESOMEPRAZOLE [Concomitant]
     Active Substance: ESOMEPRAZOLE
     Indication: Prophylaxis
     Dosage: 1 DF, QD
     Route: 048
     Dates: start: 202012
  7. CALCIUM CITRATE [Concomitant]
     Active Substance: CALCIUM CITRATE
     Indication: Blood calcium
     Dosage: 1 (315 / 200UI) QD (2 YEARS AGO)
     Route: 048
  8. XARELTO [Concomitant]
     Active Substance: RIVAROXABAN
     Indication: Product used for unknown indication
     Dosage: 1(15 MG), QD
     Route: 048
     Dates: start: 202012
  9. DANAZOL [Concomitant]
     Active Substance: DANAZOL
     Indication: Systemic lupus erythematosus
     Dosage: 3 (100 MG), QD
     Route: 048
     Dates: start: 202009
  10. PLAQUENIL [Concomitant]
     Active Substance: HYDROXYCHLOROQUINE SULFATE
     Indication: Systemic lupus erythematosus
     Dosage: 1 (200 MG), QD (2 YEAR AGO)
     Route: 048
  11. METICORTEN [Concomitant]
     Active Substance: PREDNISONE
     Indication: Systemic lupus erythematosus
     Dosage: 2 (5 MG), QD (2 YEARS AGO)
     Route: 048
  12. ESCITALOPRAM [Concomitant]
     Active Substance: ESCITALOPRAM OXALATE
     Indication: Anxiety
     Dosage: 1(10 MG), QD (2 YEARS AGO)
     Route: 048
  13. FOLIC ACID [Concomitant]
     Active Substance: FOLIC ACID
     Indication: Systemic lupus erythematosus
     Dosage: 2 (400 MG), QD (2 YEARS AGO)
     Route: 048

REACTIONS (5)
  - Thyroid mass [Unknown]
  - Choroidal effusion [Not Recovered/Not Resolved]
  - Abdominal distension [Not Recovered/Not Resolved]
  - Ill-defined disorder [Not Recovered/Not Resolved]
  - Product use in unapproved indication [Unknown]

NARRATIVE: CASE EVENT DATE: 20201201
